FAERS Safety Report 15260111 (Version 1)
Quarter: 2018Q3

REPORT INFORMATION
  Report Type: Spontaneous
  Country: DE (occurrence: DE)
  Receive Date: 20180809
  Receipt Date: 20180809
  Transmission Date: 20181010
  Serious: Yes (Other)
  Sender: FDA-Public Use
  Company Number: DE-AMGEN-DEUSP2018089935

PATIENT
  Age: 76 Year
  Sex: Male
  Weight: 86 kg

DRUGS (6)
  1. RANOLAZINE. [Concomitant]
     Active Substance: RANOLAZINE
     Indication: CORONARY ARTERY DISEASE
     Dosage: 500 MG, BID
     Dates: start: 201703
  2. REPATHA [Suspect]
     Active Substance: EVOLOCUMAB
     Indication: HYPERLIPIDAEMIA
     Dosage: 140 MG, Q2WK (EVERY 14 DAYS)
     Route: 058
     Dates: start: 201704, end: 201708
  3. EZETIMIBE. [Concomitant]
     Active Substance: EZETIMIBE
     Indication: HYPERCHOLESTEROLAEMIA
     Dosage: 10 MG, QD
     Dates: start: 201703
  4. ASPIRIN. [Concomitant]
     Active Substance: ASPIRIN
     Indication: CORONARY ARTERY DISEASE
     Dosage: 100 MG, QD
     Dates: start: 2016
  5. RANOLAZINE. [Concomitant]
     Active Substance: RANOLAZINE
     Indication: ANGINA PECTORIS
  6. REPATHA [Suspect]
     Active Substance: EVOLOCUMAB
     Indication: CORONARY ARTERY DISEASE

REACTIONS (1)
  - Rheumatic disorder [Not Recovered/Not Resolved]

NARRATIVE: CASE EVENT DATE: 201708
